FAERS Safety Report 12079478 (Version 1)
Quarter: 2016Q1

REPORT INFORMATION
  Report Type: Spontaneous
  Country: BR (occurrence: BR)
  Receive Date: 20160216
  Receipt Date: 20160216
  Transmission Date: 20160526
  Serious: Yes (Congenital Anomaly, Other)
  Sender: FDA-Public Use
  Company Number: PHHY2016BR018901

PATIENT

DRUGS (1)
  1. INDOMETHACIN. [Suspect]
     Active Substance: INDOMETHACIN
     Indication: FOETAL EXPOSURE DURING PREGNANCY
     Dosage: MATERNAL DOSE:100 MG,QD
     Route: 064

REACTIONS (4)
  - Ductus arteriosus stenosis foetal [Recovered/Resolved]
  - Dilatation ventricular [Recovered/Resolved]
  - Foetal exposure during pregnancy [Unknown]
  - Tricuspid valve incompetence [Recovered/Resolved]
